FAERS Safety Report 8410055 (Version 2)
Quarter: 2013Q2

REPORT INFORMATION
  Report Type: Spontaneous
  Country: US (occurrence: None)
  Receive Date: 20111227
  Receipt Date: 20121031
  Transmission Date: 20140414
  Serious: Yes (Other)
  Sender: FDA-Public Use
  Company Number: PHEH2011US07273

PATIENT
  Age: 49 Year
  Sex: Female

DRUGS (18)
  1. GILENYA [Suspect]
     Dosage: 0.5 MG, QD, ORAL
     Route: 048
     Dates: start: 20111013
  2. AMBIEN (ZOLPIDEM TARTRATE) [Concomitant]
  3. SENOKOT (SENNA ALEXANDRINA FRUIT) [Concomitant]
  4. SYNTHROID (LEVOTHYROXINE SODIUM) [Concomitant]
  5. BUPROPION [Concomitant]
  6. OMEPRAZOLE [Concomitant]
  7. GLIMEPIRIDE [Concomitant]
  8. IRBESARTAN [Concomitant]
  9. BACLOFEN [Concomitant]
  10. GABAPENTIN [Concomitant]
  11. FLONASE SPR (FLUTICASONE PROPIONATE) [Concomitant]
  12. CRESTOR (ROSUVASTATIN CALCIUM) [Concomitant]
  13. ALPHA LIPOIC ACID (THIOCTIC ACID) [Concomitant]
  14. ADDERALL (AMFETAMINE ASPARTATE, AMFETAMINE SULFATE, DEXAMFETAMINE SACCHARATE, DEXAMFETAMINE SULFATE) [Concomitant]
  15. FLUOXETINE [Concomitant]
  16. FISH OIL [Concomitant]
  17. VITAMIN B COMPLEX (CALCIUM PANTOTHENATE, NICOTINAMIDE, PYRIDOXINE HYDROCHLORIDE, RIBOFLAVIN, THIAMINE HYDROCHLORIDE) [Concomitant]
  18. NIACIN (NICOTINIC ACID) [Concomitant]

REACTIONS (11)
  - MUSCULOSKELETAL STIFFNESS [None]
  - JOINT STIFFNESS [None]
  - FATIGUE [None]
  - MALAISE [None]
  - PAIN [None]
  - INFLUENZA [None]
  - Muscle spasticity [None]
  - Condition aggravated [None]
  - Hypoaesthesia [None]
  - Muscle spasms [None]
  - Paraesthesia [None]
